FAERS Safety Report 10993980 (Version 2)
Quarter: 2015Q2

REPORT INFORMATION
  Report Type: Spontaneous
  Country: US (occurrence: US)
  Receive Date: 20150407
  Receipt Date: 20150511
  Transmission Date: 20150821
  Serious: Yes (Other)
  Sender: FDA-Public Use
  Company Number: US-BAYER-2015-088686

PATIENT
  Age: 73 Year
  Sex: Female
  Weight: 63 kg

DRUGS (4)
  1. VITAMIN D [Concomitant]
     Active Substance: CHOLECALCIFEROL
  2. CITRACAL [Suspect]
     Active Substance: CALCIUM CITRATE
     Dosage: UNK, ONCE
     Route: 048
  3. CITRACAL PETITES [Suspect]
     Active Substance: CALCIUM CITRATE
     Dosage: 1 DF, BID
     Route: 048
  4. ALKA-SELTZER ORIGINAL [Suspect]
     Active Substance: ANHYDROUS CITRIC ACID\ASPIRIN\SODIUM BICARBONATE

REACTIONS (2)
  - Wrong technique in drug usage process [Unknown]
  - Choking [Recovered/Resolved]
